FAERS Safety Report 4374755-9 (Version None)
Quarter: 2004Q2

REPORT INFORMATION
  Report Type: 
  Country: None (occurrence: None)
  Receive Date: 20040604
  Receipt Date: 20040519
  Transmission Date: 20050107
  Serious: Yes (Life-Threatening)
  Sender: FDA-Public Use
  Company Number: DSA_24467_2004

PATIENT
  Age: 65 Year
  Sex: Male

DRUGS (12)
  1. ENALAPRIL MALEATE [Suspect]
     Dosage: 10 MG Q DAY PO
     Route: 048
     Dates: end: 20040517
  2. TICLOPIDINE HYDROCHLORIDE [Suspect]
     Dosage: 200 MG Q DAY PO
     Route: 048
     Dates: end: 20040517
  3. ALLOPURINOL [Suspect]
     Dosage: 100 MG Q DAY PO
     Route: 048
     Dates: end: 20040517
  4. MEXILETINE HYDROCHLORIDE [Suspect]
     Dosage: 300 MG Q DAY PO
     Route: 048
     Dates: end: 20040517
  5. ASPIRIN [Concomitant]
  6. FUROSEMIDE [Concomitant]
  7. CARVEDILOL [Concomitant]
  8. SPIRONOLACTONE [Concomitant]
  9. RABEPRAZOLE SODIUM [Concomitant]
  10. TEPRENONE [Concomitant]
  11. ANTIBIOTICS-RESISTANT LACTIC ACID BACTERIAE [Concomitant]
  12. WARFARIN POTASSIUM [Concomitant]

REACTIONS (3)
  - AGRANULOCYTOSIS [None]
  - INTERSTITIAL LUNG DISEASE [None]
  - PYREXIA [None]
